FAERS Safety Report 15957137 (Version 1)
Quarter: 2019Q1

REPORT INFORMATION
  Report Type: Spontaneous
  Country: US (occurrence: US)
  Receive Date: 20190213
  Receipt Date: 20190213
  Transmission Date: 20190417
  Serious: Yes (Other)
  Sender: FDA-Public Use
  Company Number: US-NOVOPROD-645654

PATIENT
  Sex: Male

DRUGS (2)
  1. NOVOLIN R [Suspect]
     Active Substance: INSULIN HUMAN
     Indication: TYPE 1 DIABETES MELLITUS
     Dosage: SLIDING SCALE 3.3 UNITS EVERY HOUR  80-100 PER DAY
     Route: 058
     Dates: start: 201806
  2. NOVOLIN R [Suspect]
     Active Substance: INSULIN HUMAN
     Dosage: UNK
     Route: 058

REACTIONS (6)
  - Abdominal discomfort [Recovered/Resolved]
  - Suspected product contamination [Unknown]
  - Abdominal pain upper [Recovered/Resolved]
  - Abdominal pain upper [Recovered/Resolved]
  - Muscle spasms [Recovered/Resolved]
  - Diarrhoea [Recovered/Resolved]

NARRATIVE: CASE EVENT DATE: 20190125
